FAERS Safety Report 4981021-7 (Version None)
Quarter: 2006Q2

REPORT INFORMATION
  Report Type: 
  Country: None (occurrence: None)
  Receive Date: 20060418
  Receipt Date: 20060330
  Transmission Date: 20061013
  Serious: Yes (Hospitalization)
  Sender: FDA-Public Use
  Company Number: USA050393918

PATIENT
  Age: 61 Year
  Sex: Female

DRUGS (10)
  1. HUMALOG [Suspect]
     Indication: DIABETES MELLITUS
     Dosage: 12 U, 3/D,
     Dates: start: 20020101
  2. HUMULIN N [Suspect]
     Dates: end: 20040101
  3. HUMALOG PEN [Concomitant]
  4. ASPIRIN [Concomitant]
  5. LANTUS [Concomitant]
  6. LOVASTATIN [Concomitant]
  7. ALTACE (RAMIPRIL DURA) [Concomitant]
  8. LEVOXYL [Concomitant]
  9. POTASSIUM CHLORIDE [Concomitant]
  10. IRON (IRON) [Concomitant]

REACTIONS (2)
  - CEREBROVASCULAR ACCIDENT [None]
  - CORONARY ARTERY OCCLUSION [None]
